FAERS Safety Report 9027075 (Version 4)
Quarter: 2013Q4

REPORT INFORMATION
  Report Type: Report from Study
  Country: JP (occurrence: JP)
  Receive Date: 20130123
  Receipt Date: 20131227
  Transmission Date: 20140711
  Serious: Yes (Death, Life-Threatening, Hospitalization)
  Sender: FDA-Public Use
  Company Number: JP-009507513-1301JPN010050

PATIENT
  Age: 83 Year
  Sex: Male
  Weight: 61 kg

DRUGS (21)
  1. TEMODAL INFUSION 100MG [Suspect]
     Indication: GLIOBLASTOMA MULTIFORME
     Dosage: 150 MG/M2, QD
     Route: 041
     Dates: start: 20120104, end: 20120108
  2. TEMODAL INFUSION 100MG [Suspect]
     Dosage: 150 MG/M2, QD
     Route: 041
     Dates: start: 20120130, end: 20120203
  3. TEMODAL INFUSION 100MG [Suspect]
     Dosage: 150 MG/M2, QD
     Route: 041
     Dates: start: 20120227, end: 20120302
  4. TEMODAL INFUSION 100MG [Suspect]
     Dosage: 150 MG/M2, QD
     Route: 041
     Dates: start: 20120326, end: 20120330
  5. TEMODAL INFUSION 100MG [Suspect]
     Dosage: 150 MG/M2, QD
     Route: 041
     Dates: start: 20120423, end: 20120427
  6. TEMODAL INFUSION 100MG [Suspect]
     Dosage: 150 MG/M2, QD
     Route: 041
     Dates: start: 20120521, end: 20120525
  7. TEMODAL [Suspect]
     Indication: GLIOBLASTOMA MULTIFORME
     Dosage: UNK
     Route: 048
     Dates: start: 20111110, end: 20111112
  8. FERON [Concomitant]
     Dosage: UNK
     Route: 041
     Dates: start: 20120104, end: 20120104
  9. FERON [Concomitant]
     Dosage: UNK
     Route: 041
     Dates: start: 20120130, end: 20120130
  10. FERON [Concomitant]
     Dosage: UNK
     Route: 041
     Dates: start: 20120227, end: 20120227
  11. FERON [Concomitant]
     Dosage: UNK
     Route: 041
     Dates: start: 20120326, end: 20120326
  12. FERON [Concomitant]
     Dosage: UNK
     Route: 041
     Dates: start: 20120423, end: 20120423
  13. FERON [Concomitant]
     Dosage: UNK
     Route: 041
     Dates: start: 20120521, end: 20120521
  14. DEPAKENE [Concomitant]
     Dosage: UNK
     Route: 048
     Dates: start: 20111030, end: 20120626
  15. KEPPRA [Concomitant]
     Dosage: UNK
     Route: 048
     Dates: start: 20111207, end: 20120626
  16. DEXAMETHASONE [Concomitant]
     Dosage: UNK
     Route: 048
     Dates: start: 20120202, end: 20120626
  17. TAKEPRON [Concomitant]
     Indication: PROPHYLAXIS
     Dosage: UNK
     Route: 048
     Dates: start: 20120202, end: 20120626
  18. ROCEPHIN [Concomitant]
     Indication: PROPHYLAXIS
     Dosage: UNK
     Route: 042
     Dates: start: 20120310, end: 20120316
  19. RECOMODULIN [Concomitant]
     Indication: DISSEMINATED INTRAVASCULAR COAGULATION
     Dosage: UNK
     Route: 042
     Dates: start: 20120619, end: 20120625
  20. ROZEREM [Concomitant]
     Indication: INSOMNIA
     Dosage: UNK
     Route: 048
     Dates: start: 20120216, end: 20120508
  21. ROCEPHIN [Concomitant]
     Indication: PNEUMONIA ASPIRATION
     Dosage: UNK
     Route: 042
     Dates: start: 20120530, end: 20120607

REACTIONS (10)
  - Disseminated intravascular coagulation [Fatal]
  - Pneumonia aspiration [Not Recovered/Not Resolved]
  - Delirium [Recovering/Resolving]
  - Hypoalbuminaemia [Not Recovered/Not Resolved]
  - Insomnia [Recovering/Resolving]
  - Hyponatraemia [Recovering/Resolving]
  - Malnutrition [Not Recovered/Not Resolved]
  - Dehydration [Not Recovered/Not Resolved]
  - Platelet count decreased [Not Recovered/Not Resolved]
  - Lymphocyte count decreased [Not Recovered/Not Resolved]
